FAERS Safety Report 16525982 (Version 1)
Quarter: 2019Q3

REPORT INFORMATION
  Report Type: Spontaneous
  Country: US (occurrence: US)
  Receive Date: 20190522
  Receipt Date: 20190522
  Transmission Date: 20191004
  Serious: Yes (Other)
  Sender: FDA-Public Use
  Company Number: None

PATIENT
  Age: 65 Year
  Weight: 92.53 kg

DRUGS (1)
  1. SPIRIVA [Suspect]
     Active Substance: TIOTROPIUM BROMIDE MONOHYDRATE
     Dosage: TWO TIMES (INHALES) AT ONCE, ONCE A DAY, INHALE BY MOUTH
     Route: 055
     Dates: start: 20190420, end: 20190428

REACTIONS (5)
  - Dyspnoea [None]
  - Drug ineffective [None]
  - Device issue [None]
  - Product quality issue [None]
  - Product quality control issue [None]

NARRATIVE: CASE EVENT DATE: 20190428
